FAERS Safety Report 4364869-1 (Version None)
Quarter: 2004Q2

REPORT INFORMATION
  Report Type: 
  Country: None (occurrence: None)
  Receive Date: 20040521
  Receipt Date: 20040430
  Transmission Date: 20050107
  Serious: Yes (Death)
  Sender: FDA-Public Use
  Company Number: US_030493865

PATIENT
  Age: 53 Year
  Sex: Female
  Weight: 114 kg

DRUGS (21)
  1. ZYPREXA [Suspect]
     Indication: SCHIZOPHRENIA
     Dosage: 30 MG/DAY
     Dates: start: 19981211, end: 20021009
  2. BENADRYL [Concomitant]
  3. LAMICTAL [Concomitant]
  4. SYNTHROID [Concomitant]
  5. AVANDIA [Concomitant]
  6. PREVACID [Concomitant]
  7. ATENOLOL [Concomitant]
  8. CLARITIN-D [Concomitant]
  9. PROPRANOLOL [Concomitant]
  10. METFORMIN [Concomitant]
  11. LORATADINE [Concomitant]
  12. LANSOPRAZOLE [Concomitant]
  13. SIMETHICONE [Concomitant]
  14. CIPRO [Concomitant]
  15. VICODIN [Concomitant]
  16. ATENOLOL [Concomitant]
  17. LESCOL [Concomitant]
  18. BACTRIM DS [Concomitant]
  19. COLACE (DOCUSATE SODIUM) [Concomitant]
  20. TORADOL [Concomitant]
  21. KEFZOL [Concomitant]

REACTIONS (7)
  - BODY MASS INDEX INCREASED [None]
  - DIABETES MELLITUS [None]
  - MAMMOGRAM ABNORMAL [None]
  - OVERDOSE [None]
  - THERAPEUTIC AGENT TOXICITY [None]
  - TREATMENT NONCOMPLIANCE [None]
  - TREMOR [None]
